FAERS Safety Report 4790164-2 (Version None)
Quarter: 2005Q3

REPORT INFORMATION
  Report Type: 
  Country: None (occurrence: None)
  Receive Date: 20050914
  Receipt Date: 20040803
  Transmission Date: 20060218
  Serious: Yes (Disabling, Other)
  Sender: FDA-Public Use
  Company Number: 163-20785-04070078

PATIENT
  Age: 63 Year
  Sex: Female

DRUGS (3)
  1. THALOMID [Suspect]
     Indication: MULTIPLE MYELOMA
     Dosage: 100MG, Q.H.S., ORAL
     Route: 048
     Dates: start: 20040224, end: 20040427
  2. VINCRISTINE [Suspect]
     Dates: start: 20040518
  3. VELCADE [Concomitant]

REACTIONS (2)
  - DISEASE PROGRESSION [None]
  - HYPOAESTHESIA [None]
